FAERS Safety Report 5338794-3 (Version None)
Quarter: 2007Q2

REPORT INFORMATION
  Report Type: 
  Country: None (occurrence: None)
  Receive Date: 20070322
  Receipt Date: 20060724
  Transmission Date: 20071010
  Serious: Yes (Other)
  Sender: FDA-Public Use
  Company Number: 200612450BCC

PATIENT
  Age: 59 Year
  Sex: Female
  Weight: 63.05 kg

DRUGS (8)
  1. ALEVE [Suspect]
     Indication: ARTHRITIS
     Dosage: 440 MG, ONCE, ORAL
     Route: 048
     Dates: start: 20060609
  2. ASPIRIN [Suspect]
  3. COREG [Concomitant]
  4. ATACAND [Concomitant]
  5. SPIRONOLACTONE [Concomitant]
  6. PREMARIN [Concomitant]
  7. FLAXSEED [Concomitant]
  8. VITAMINS NOS [Concomitant]

REACTIONS (1)
  - HAEMATOCHEZIA [None]
